FAERS Safety Report 8055998-X (Version None)
Quarter: 2012Q1

REPORT INFORMATION
  Report Type: 
  Country: None (occurrence: None)
  Receive Date: 20120119
  Receipt Date: 20120109
  Transmission Date: 20120608
  Serious: Yes (Hospitalization)
  Sender: FDA-Public Use
  Company Number: US-BAYER-2010-002112

PATIENT
  Age: 40 Year
  Sex: Female
  Weight: 52.154 kg

DRUGS (2)
  1. YAZ [Suspect]
     Indication: ORAL CONTRACEPTION
     Dosage: UNK
     Dates: start: 20030401, end: 20071101
  2. YASMIN [Suspect]
     Indication: ORAL CONTRACEPTION
     Dosage: UNK
     Dates: start: 20030401, end: 20071101

REACTIONS (3)
  - MYOCARDIAL INFARCTION [None]
  - ANGINA UNSTABLE [None]
  - MENTAL DISORDER [None]
